FAERS Safety Report 21704818 (Version 1)
Quarter: 2022Q4

REPORT INFORMATION
  Report Type: Spontaneous
  Country: US (occurrence: US)
  Receive Date: 20221209
  Receipt Date: 20221209
  Transmission Date: 20230113
  Serious: Yes (Death, Hospitalization, Other)
  Sender: FDA-Public Use
  Company Number: US-APOTEX-2022AP016557

PATIENT
  Age: 20 Year
  Sex: Female

DRUGS (1)
  1. FENTANYL [Suspect]
     Active Substance: FENTANYL
     Indication: Product used for unknown indication
     Dosage: UNK
     Route: 065

REACTIONS (14)
  - Hepatotoxicity [Fatal]
  - Coma [Fatal]
  - Depressed level of consciousness [Fatal]
  - Bradycardia [Fatal]
  - Myocardial injury [Fatal]
  - Myocardial ischaemia [Fatal]
  - Rhabdomyolysis [Fatal]
  - Cardiac arrest [Fatal]
  - Seizure [Fatal]
  - Coagulopathy [Fatal]
  - Metabolic acidosis [Fatal]
  - Hypotension [Fatal]
  - Toxicity to various agents [Fatal]
  - Respiratory depression [Fatal]
